FAERS Safety Report 5011062-5 (Version None)
Quarter: 2006Q2

REPORT INFORMATION
  Report Type: 
  Country: None (occurrence: None)
  Receive Date: 20060525
  Receipt Date: 20060516
  Transmission Date: 20061013
  Serious: Yes (Other)
  Sender: FDA-Public Use
  Company Number: US-JNJFOC-20051104405

PATIENT
  Age: 87 Year
  Sex: Male
  Weight: 51.8 kg

DRUGS (3)
  1. REMICADE [Suspect]
     Dosage: THE INFLIXIMAB INFUSION WAS STOPPED AND ONLY HALF OF THE 310 MG DOSE WAS ADMINISTERED.
     Route: 042
  2. REMICADE [Suspect]
     Route: 042
  3. REMICADE [Suspect]
     Indication: RHEUMATOID ARTHRITIS
     Route: 042

REACTIONS (3)
  - CHILLS [None]
  - CYANOSIS [None]
  - INFUSION RELATED REACTION [None]
